FAERS Safety Report 7006106-5 (Version None)
Quarter: 2010Q3

REPORT INFORMATION
  Report Type: 
  Country: None (occurrence: None)
  Receive Date: 20100921
  Receipt Date: 20100910
  Transmission Date: 20110219
  Serious: Yes (Other)
  Sender: FDA-Public Use
  Company Number: US-PFIZER INC-2010083535

PATIENT
  Sex: Male

DRUGS (1)
  1. CHANTIX [Suspect]
     Indication: SMOKING CESSATION THERAPY
     Dosage: UNK
     Dates: start: 20070228, end: 20070701

REACTIONS (9)
  - AGEUSIA [None]
  - AGITATION [None]
  - ANOSMIA [None]
  - ANXIETY [None]
  - DEPRESSION [None]
  - DYSKINESIA [None]
  - LOSS OF CONSCIOUSNESS [None]
  - MENTAL DISORDER [None]
  - SUICIDAL IDEATION [None]
